FAERS Safety Report 7716913-9 (Version None)
Quarter: 2011Q3

REPORT INFORMATION
  Report Type: 
  Country: None (occurrence: None)
  Receive Date: 20110829
  Receipt Date: 20110818
  Transmission Date: 20111222
  Serious: Yes (Other)
  Sender: FDA-Public Use
  Company Number: US-ASTRAZENECA-2011SE11728

PATIENT
  Age: 56 Year
  Sex: Male

DRUGS (1)
  1. NEXIUM [Suspect]
     Route: 048

REACTIONS (7)
  - DIABETES MELLITUS [None]
  - SLEEP DISORDER DUE TO A GENERAL MEDICAL CONDITION [None]
  - TRANSIENT ISCHAEMIC ATTACK [None]
  - APHONIA [None]
  - APHAGIA [None]
  - DYSPEPSIA [None]
  - DRUG DOSE OMISSION [None]
